FAERS Safety Report 9479728 (Version 1)
Quarter: 2013Q3

REPORT INFORMATION
  Report Type: Spontaneous
  Country: US (occurrence: US)
  Receive Date: 20130828
  Receipt Date: 20130828
  Transmission Date: 20140515
  Serious: Yes (Hospitalization)
  Sender: FDA-Public Use
  Company Number: US-AMGEN-KDL046762

PATIENT
  Age: 43 Year
  Sex: Female

DRUGS (2)
  1. ENBREL [Suspect]
     Indication: RHEUMATOID ARTHRITIS
     Dosage: UNK UNK, UNK
     Route: 065
     Dates: start: 19990601, end: 20010101
  2. PREDNISONE [Concomitant]

REACTIONS (5)
  - Uterine cancer [Unknown]
  - Hysterectomy [Unknown]
  - Faecaloma [Unknown]
  - Pain in extremity [Unknown]
  - Local swelling [Unknown]
